FAERS Safety Report 10327841 (Version 3)
Quarter: 2014Q3

REPORT INFORMATION
  Report Type: Report from Study
  Country: BR (occurrence: BR)
  Receive Date: 20140721
  Receipt Date: 20140905
  Transmission Date: 20150326
  Serious: Yes (Hospitalization)
  Sender: FDA-Public Use
  Company Number: BR-ROCHE-1437324

PATIENT
  Sex: Male

DRUGS (1)
  1. AVASTIN [Suspect]
     Active Substance: BEVACIZUMAB
     Indication: COLORECTAL CANCER
     Route: 065
     Dates: start: 20140702

REACTIONS (4)
  - Incisional hernia [Unknown]
  - Post procedural infection [Unknown]
  - Asthenia [Not Recovered/Not Resolved]
  - Intestinal obstruction [Not Recovered/Not Resolved]
